FAERS Safety Report 8349450-1 (Version None)
Quarter: 2012Q2

REPORT INFORMATION
  Report Type: 
  Country: None (occurrence: None)
  Receive Date: 20120510
  Receipt Date: 20120402
  Transmission Date: 20120825
  Serious: Yes (Other)
  Sender: FDA-Public Use
  Company Number: JP-ELI_LILLY_AND_COMPANY-JP201203001610

PATIENT
  Age: 32 Year
  Sex: Female

DRUGS (2)
  1. LITHIUM CARBONATE [Concomitant]
     Dosage: UNK
     Route: 048
  2. ZYPREXA [Suspect]
     Dosage: 2.5 MG, QD
     Route: 048

REACTIONS (1)
  - PULMONARY EMBOLISM [None]
